FAERS Safety Report 23193282 (Version 1)
Quarter: 2023Q4

REPORT INFORMATION
  Report Type: Spontaneous
  Country: US (occurrence: None)
  Receive Date: 20231116
  Receipt Date: 20231116
  Transmission Date: 20240110
  Serious: Yes (Death)
  Sender: FDA-Public Use
  Company Number: None

PATIENT
  Age: 53 Year
  Sex: Male
  Weight: 75.33 kg

DRUGS (21)
  1. REVLIMID [Suspect]
     Active Substance: LENALIDOMIDE
     Indication: Plasma cell myeloma
     Dosage: FREQUENCY : DAILY;?
     Route: 048
     Dates: start: 20230921
  2. albuterol sulfate 2 mg/5 mL oral syrup [Concomitant]
  3. AMITRIPTYLINE [Concomitant]
     Active Substance: AMITRIPTYLINE
  4. FOLIC ACID [Concomitant]
     Active Substance: FOLIC ACID
  5. hydralazine 10 mg tablet [Concomitant]
  6. HYDROXYZINE HYDROCHLORIDE [Concomitant]
     Active Substance: HYDROXYZINE HYDROCHLORIDE
  7. HYDROXYZINE HYDROCHLORIDE [Concomitant]
     Active Substance: HYDROXYZINE HYDROCHLORIDE
  8. ibuprofen 600 mg tablet [Concomitant]
  9. K-Phos-Neutral 250 mg tablet [Concomitant]
  10. lidocaine 5 % topical patch [Concomitant]
  11. MagOx 400 mg (241.3 mg magnesium) tablet [Concomitant]
  12. oxazepam 10 mg capsule [Concomitant]
  13. Percocet 5 mg-325 mg table [Concomitant]
  14. potassium chloride ER 10 mEq [Concomitant]
  15. prazosin 2 mg capsule [Concomitant]
  16. Protonix 40 mg tablet,delayed release [Concomitant]
  17. Seroquel 50 mg tablet [Concomitant]
  18. Theragran-M Premier 50 Plus 400 mcg-250 mcg-375 mcg table [Concomitant]
  19. Tylenol Arthritis Pain 650 mg [Concomitant]
  20. Valium 5 mg tablet [Concomitant]
  21. Vitamin B-1 100 mg tablet [Concomitant]

REACTIONS (1)
  - Death [None]

NARRATIVE: CASE EVENT DATE: 20231115
